FAERS Safety Report 21238009 (Version 1)
Quarter: 2022Q3

REPORT INFORMATION
  Report Type: Spontaneous
  Country: US (occurrence: US)
  Receive Date: 20220822
  Receipt Date: 20220822
  Transmission Date: 20221027
  Serious: No
  Sender: FDA-Public Use
  Company Number: US-SANOFI-01231743

PATIENT
  Age: 79 Year
  Sex: Female

DRUGS (2)
  1. DUPIXENT [Suspect]
     Active Substance: DUPILUMAB
     Indication: Psoriatic arthropathy
     Dosage: 300 MG QOW
     Route: 058
  2. SODIUM [Concomitant]
     Active Substance: SODIUM

REACTIONS (4)
  - Pruritus [Not Recovered/Not Resolved]
  - Hypoacusis [Unknown]
  - Product use in unapproved indication [Unknown]
  - Accidental exposure to product [Unknown]
